FAERS Safety Report 6964924-3 (Version None)
Quarter: 2010Q3

REPORT INFORMATION
  Report Type: 
  Country: None (occurrence: None)
  Receive Date: 20100903
  Receipt Date: 20100824
  Transmission Date: 20110219
  Serious: Yes (Other)
  Sender: FDA-Public Use
  Company Number: US-SANOFI-AVENTIS-2010SA043524

PATIENT
  Age: 64 Year
  Sex: Male
  Weight: 142.88 kg

DRUGS (7)
  1. LANTUS [Suspect]
     Indication: DIABETES MELLITUS
     Dosage: DOSE:40 UNIT(S)
     Route: 058
     Dates: start: 20100120, end: 20100120
  2. LANTUS [Suspect]
     Dosage: DOSE:50 UNIT(S)
     Route: 058
     Dates: start: 20100723, end: 20100806
  3. SOLOSTAR [Suspect]
     Indication: DIABETES MELLITUS
     Dates: start: 20100120, end: 20100120
  4. SOLOSTAR [Suspect]
     Dates: start: 20100723, end: 20100806
  5. LISINOPRIL [Concomitant]
     Indication: BLOOD PRESSURE
     Dates: start: 20070101
  6. METFORMIN [Concomitant]
     Indication: BLOOD GLUCOSE INCREASED
     Dates: start: 20030101
  7. ASPIRIN [Concomitant]
     Dates: start: 20000101

REACTIONS (2)
  - EYE DISORDER [None]
  - RETINAL TEAR [None]
